FAERS Safety Report 13164427 (Version 2)
Quarter: 2017Q1

REPORT INFORMATION
  Report Type: Spontaneous
  Country: US (occurrence: US)
  Receive Date: 20170130
  Receipt Date: 20170302
  Transmission Date: 20170428
  Serious: Yes (Hospitalization)
  Sender: FDA-Public Use
  Company Number: US-009507513-1701USA012927

PATIENT
  Sex: Female

DRUGS (7)
  1. KEYTRUDA [Suspect]
     Active Substance: PEMBROLIZUMAB
     Dosage: 98 MG, ONCE
     Dates: start: 20151125, end: 20151125
  2. ZOMETA [Concomitant]
     Active Substance: ZOLEDRONIC ACID
  3. KEYTRUDA [Suspect]
     Active Substance: PEMBROLIZUMAB
     Dosage: UNK, Q3W
  4. KEYTRUDA [Suspect]
     Active Substance: PEMBROLIZUMAB
     Dosage: UNK, Q3W
  5. KEYTRUDA [Suspect]
     Active Substance: PEMBROLIZUMAB
     Indication: MALIGNANT MELANOMA
     Dosage: 115 MG, ONCE
     Route: 042
     Dates: start: 20151105, end: 20151105
  6. XGEVA [Concomitant]
     Active Substance: DENOSUMAB
  7. IMLYGIC [Concomitant]
     Active Substance: TALIMOGENE LAHERPAREPVEC

REACTIONS (3)
  - Metabolic acidosis [Unknown]
  - Diarrhoea [Recovered/Resolved]
  - Hypotension [Unknown]

NARRATIVE: CASE EVENT DATE: 20161222
